FAERS Safety Report 9411699 (Version 1)
Quarter: 2013Q2

REPORT INFORMATION
  Report Type: Spontaneous
  Country: US (occurrence: None)
  Receive Date: 20130522
  Receipt Date: 20130522
  Transmission Date: 20140414
  Serious: Yes (Hospitalization)
  Sender: FDA-Public Use
  Company Number: UTC-031349

PATIENT
  Age: 62 Year
  Sex: Male

DRUGS (4)
  1. TYVASO (6 MICROGRAM, AEROSOL FOR INHALATION) (TREPROSTINIL SODIUM) [Suspect]
     Indication: PULMONARY ARTERIAL HYPERTENSION
     Route: 055
     Dates: start: 20100402
  2. LETAIRIS (AMBRISENTAN) (10 MILLIGRAM, TABLET) (AMBRISENTAN) [Suspect]
     Dates: start: 20070205
  3. REVATIO (SILDENAFIL CITRATE) (UNKNOWN) (SILDENAFIL) [Suspect]
     Indication: PRODUCT USED FOR UNKNOWN INDICATION
  4. PLAVIX (CLOPIDOGREL) [Concomitant]

REACTIONS (1)
  - Bronchitis [None]
